FAERS Safety Report 25323958 (Version 5)
Quarter: 2025Q3

REPORT INFORMATION
  Report Type: Spontaneous
  Country: IN (occurrence: IN)
  Receive Date: 20250516
  Receipt Date: 20250919
  Transmission Date: 20251020
  Serious: Yes (Other)
  Sender: PFIZER
  Company Number: IN-PFIZER INC-PV202500009331

PATIENT
  Age: 71 Year
  Sex: Male
  Weight: 72 kg

DRUGS (8)
  1. LORLATINIB [Suspect]
     Active Substance: LORLATINIB
     Indication: Lung adenocarcinoma
     Dosage: 100 MG, 1X/DAY
     Route: 048
     Dates: start: 20241226
  2. LORLATINIB [Suspect]
     Active Substance: LORLATINIB
     Dosage: 100 MG, ALTERNATE DAY
     Route: 048
  3. GLIMISAVE [Concomitant]
     Indication: Type 2 diabetes mellitus
     Dosage: 500 MG, 2X/DAY (UNIT:1, BD)
  4. TENIVA M [Concomitant]
     Indication: Type 2 diabetes mellitus
     Dosage: 500 MG, 1X/DAY (UNIT:1, OD)
  5. CILNIDIPINE [Concomitant]
     Active Substance: CILNIDIPINE
     Indication: Blood pressure abnormal
     Dosage: 500 MG, 1X/DAY (UNIT:1, OD)
  6. TORSEMIDE [Concomitant]
     Active Substance: TORSEMIDE
  7. LEVOTHYROXINE [Concomitant]
     Active Substance: LEVOTHYROXINE
     Dosage: 25 MCG OD (EMPTY STOMACH FOR 1 MONTH)
  8. ATORLIP F [Concomitant]
     Dosage: 1 DF, 1X/DAY ((10/145) AT NIGHT FOR 1 MONTH)

REACTIONS (15)
  - Laryngeal oedema [Unknown]
  - Blood pressure increased [Unknown]
  - Neuropathy peripheral [Unknown]
  - Low density lipoprotein increased [Recovering/Resolving]
  - Weight increased [Not Recovered/Not Resolved]
  - Mood altered [Recovering/Resolving]
  - Dysphonia [Unknown]
  - Glycosylated haemoglobin increased [Unknown]
  - Body mass index increased [Unknown]
  - Heart rate increased [Unknown]
  - Peripheral swelling [Unknown]
  - Mood swings [Unknown]
  - Blood thyroid stimulating hormone increased [Unknown]
  - Pyrexia [Unknown]
  - Off label use [Unknown]

NARRATIVE: CASE EVENT DATE: 20250110
